FAERS Safety Report 7170313-1 (Version None)
Quarter: 2010Q4

REPORT INFORMATION
  Report Type: 
  Country: None (occurrence: None)
  Receive Date: 20101217
  Receipt Date: 20101122
  Transmission Date: 20110411
  Serious: No
  Sender: FDA-Public Use
  Company Number: A0896439A

PATIENT
  Sex: Female

DRUGS (1)
  1. LAMICTAL XR [Suspect]
     Indication: MOOD SWINGS
     Dosage: 25MG UNKNOWN
     Route: 048
     Dates: start: 20100101

REACTIONS (1)
  - ADVERSE DRUG REACTION [None]
